FAERS Safety Report 10302241 (Version 1)
Quarter: 2014Q3

REPORT INFORMATION
  Report Type: Spontaneous
  Country: US (occurrence: None)
  Receive Date: 20140709
  Receipt Date: 20140709
  Transmission Date: 20150326
  Serious: Yes (Hospitalization)
  Sender: FDA-Public Use
  Company Number: 14AE030

PATIENT
  Age: 11 Year
  Sex: Female
  Weight: 48.99 kg

DRUGS (1)
  1. DIPHENHYDRAMINE HYDROCHLORIDE. [Suspect]
     Active Substance: DIPHENHYDRAMINE HYDROCHLORIDE
     Indication: PRURITUS
     Dosage: 2 BY MOUTH/ONCE
     Route: 048
     Dates: start: 20140625

REACTIONS (3)
  - Drug hypersensitivity [None]
  - Lip swelling [None]
  - Paraesthesia oral [None]

NARRATIVE: CASE EVENT DATE: 20140625
